FAERS Safety Report 13070660 (Version 2)
Quarter: 2017Q1

REPORT INFORMATION
  Report Type: Spontaneous
  Country: CA (occurrence: CA)
  Receive Date: 20161229
  Receipt Date: 20170131
  Transmission Date: 20170428
  Serious: Yes (Hospitalization, Other)
  Sender: FDA-Public Use
  Company Number: CA-BEH-2016076665

PATIENT
  Age: 68 Year
  Sex: Female

DRUGS (1)
  1. HUMAN IMMUNOGLOBULIN (NC) [Suspect]
     Active Substance: HUMAN IMMUNOGLOBULIN G
     Indication: HYPOGAMMAGLOBULINAEMIA

REACTIONS (16)
  - Cryoglobulinaemia [Recovered/Resolved]
  - Petechiae [Recovered/Resolved]
  - Fatigue [Recovered/Resolved]
  - Epistaxis [Recovered/Resolved]
  - Acute kidney injury [Recovered/Resolved]
  - Dyspnoea [Recovered/Resolved]
  - Multiple organ dysfunction syndrome [Recovered/Resolved]
  - Pulmonary oedema [Recovered/Resolved]
  - Pancytopenia [Recovered/Resolved]
  - Joint swelling [Unknown]
  - Cough [Recovered/Resolved]
  - Lactic acidosis [Recovered/Resolved]
  - Petechiae [Unknown]
  - Pyrexia [Recovered/Resolved]
  - Extremity necrosis [Recovered/Resolved]
  - Glomerulonephritis proliferative [Recovered/Resolved]
